FAERS Safety Report 9284418 (Version 2)
Quarter: 2013Q2

REPORT INFORMATION
  Report Type: Spontaneous
  Country: US (occurrence: US)
  Receive Date: 20130510
  Receipt Date: 20130604
  Transmission Date: 20140414
  Serious: Yes (Hospitalization)
  Sender: FDA-Public Use
  Company Number: US-BAXTER-2013BAX016792

PATIENT
  Age: 73 Year
  Sex: Male

DRUGS (1)
  1. DIANEAL LOW CALCIUM [Suspect]
     Indication: PERITONEAL DIALYSIS
     Route: 033

REACTIONS (4)
  - Lung disorder [Recovering/Resolving]
  - Splenic vein thrombosis [Recovering/Resolving]
  - Pneumonia [Recovered/Resolved]
  - Abdominal pain upper [Recovering/Resolving]
